FAERS Safety Report 9267758 (Version 1)
Quarter: 2013Q2

REPORT INFORMATION
  Report Type: Spontaneous
  Country: US (occurrence: US)
  Receive Date: 20130502
  Receipt Date: 20130502
  Transmission Date: 20140414
  Serious: Yes (Hospitalization)
  Sender: FDA-Public Use
  Company Number: US-ALEXION-A201200979

PATIENT
  Age: 4 Year
  Sex: Male
  Weight: 17.2 kg

DRUGS (15)
  1. SOLIRIS 300MG [Suspect]
     Indication: HAEMOLYTIC URAEMIC SYNDROME
     Dosage: 600 MG, UNK
     Route: 042
     Dates: start: 20120411
  2. SOLIRIS 300MG [Suspect]
     Dosage: 300 MG, Q2W
     Route: 042
     Dates: start: 20120418
  3. TOPOTECAN [Concomitant]
     Indication: RETINOBLASTOMA
     Dosage: UNK 2 TIMES PER WEEK AS OUTPATIENT
     Route: 037
  4. TOPOTECAN [Concomitant]
     Indication: CHEMOTHERAPY
  5. LISINOPRIL [Concomitant]
     Indication: HYPERTENSION
     Dosage: 2.5 MG, QD
     Route: 048
  6. CALCIUM CARBONATE [Concomitant]
     Indication: SUPPLEMENTATION THERAPY
     Dosage: 500 MG, BID
     Route: 048
  7. ISRADIPINE [Concomitant]
     Indication: HYPERTENSION
     Dosage: 2.5 MG, PRN
     Route: 048
  8. ZOFRAN [Concomitant]
     Indication: NAUSEA
     Dosage: 4 MG, PRN
     Route: 048
  9. ZOFRAN [Concomitant]
     Indication: VOMITING
  10. BICITRA [Concomitant]
     Indication: ELECTROLYTE IMBALANCE
     Dosage: 17 MEQ, TID
     Route: 048
  11. RISPERIDONE [Concomitant]
     Indication: MOOD ALTERED
     Dosage: 0.25 MG, QD
     Route: 048
  12. ZOLOFT [Concomitant]
     Indication: DEPRESSION
     Dosage: 25 MG, QD
     Route: 048
  13. NORVASC [Concomitant]
     Indication: HYPERTENSION
     Dosage: 5 MG, BID
     Route: 048
  14. ZANTAC [Concomitant]
     Indication: ABDOMINAL DISCOMFORT
     Dosage: 25 MG, BID
     Route: 048
  15. PENICILLIN VK [Concomitant]
     Indication: PROPHYLAXIS
     Dosage: 125 MG, BID
     Route: 048

REACTIONS (2)
  - Cholecystitis [Recovered/Resolved]
  - Cholelithiasis [Recovered/Resolved]
